FAERS Safety Report 7923260 (Version 4)
Quarter: 2013Q3

REPORT INFORMATION
  Report Type: Spontaneous
  Country: US (occurrence: US)
  Receive Date: 20110429
  Receipt Date: 20130828
  Transmission Date: 20140515
  Serious: Yes (Other)
  Sender: FDA-Public Use
  Company Number: US-ASTRAZENECA-2010SE26205

PATIENT
  Age: 40 Year
  Sex: Female
  Weight: 130.6 kg

DRUGS (3)
  1. NEXIUM [Suspect]
     Indication: GASTROOESOPHAGEAL REFLUX DISEASE
     Route: 048
     Dates: start: 2011
  2. NEXIUM [Suspect]
     Indication: GASTROOESOPHAGEAL REFLUX DISEASE
     Route: 048
     Dates: start: 20130806
  3. CYMBALTA [Concomitant]
     Indication: BIPOLAR DISORDER

REACTIONS (13)
  - Lymphoedema [Unknown]
  - Road traffic accident [Unknown]
  - Sleep disorder due to a general medical condition [Unknown]
  - Throat irritation [Unknown]
  - Amnesia [Unknown]
  - Tremor [Unknown]
  - Insomnia [Unknown]
  - Malaise [Unknown]
  - Aphagia [Unknown]
  - Gastrooesophageal reflux disease [Unknown]
  - Oedema [Unknown]
  - Post-traumatic stress disorder [Unknown]
  - Drug dose omission [Unknown]
